FAERS Safety Report 25915394 (Version 1)
Quarter: 2025Q4

REPORT INFORMATION
  Report Type: Spontaneous
  Country: US (occurrence: US)
  Receive Date: 20251013
  Receipt Date: 20251013
  Transmission Date: 20260118
  Serious: No
  Sender: ANI
  Company Number: US-ANIPHARMA-2025-US-034505

PATIENT
  Age: 47 Year
  Sex: Female
  Weight: 77.11 kg

DRUGS (10)
  1. CORTICOTROPIN [Suspect]
     Active Substance: CORTICOTROPIN
     Indication: Keratitis
     Dosage: 80 UNITS ONCE ON 7/9 AND 40 UNITS ON 7/16; INJECT 80 UNITS (1 ML) UNDER THE SKIN TWICE A WEEK
     Route: 058
     Dates: start: 20250709, end: 20250716
  2. CLONAZEPAM [Concomitant]
     Active Substance: CLONAZEPAM
  3. TYLENOL EXTRA STRENGTH [Concomitant]
     Active Substance: ACETAMINOPHEN
  4. PREDNISOLONE [Concomitant]
     Active Substance: PREDNISOLONE
  5. LUMIFY [Concomitant]
     Active Substance: BRIMONIDINE TARTRATE
  6. CEQUA [Concomitant]
     Active Substance: CYCLOSPORINE
  7. PREDNISONE [Concomitant]
     Active Substance: PREDNISONE
  8. IBUPROFEN [Concomitant]
     Active Substance: IBUPROFEN
  9. TRAZODONE HCL [Concomitant]
     Active Substance: TRAZODONE HYDROCHLORIDE
  10. METHOTREXATE [Concomitant]
     Active Substance: METHOTREXATE

REACTIONS (5)
  - Sleep disorder [Recovered/Resolved]
  - Fatigue [Recovered/Resolved]
  - Mood swings [Recovered/Resolved]
  - Irritability [Recovered/Resolved]
  - Insomnia [Unknown]

NARRATIVE: CASE EVENT DATE: 20250709
